FAERS Safety Report 5060296-2 (Version None)
Quarter: 2006Q3

REPORT INFORMATION
  Report Type: 
  Country: None (occurrence: None)
  Receive Date: 20060720
  Receipt Date: 20060712
  Transmission Date: 20061208
  Serious: Yes (Hospitalization)
  Sender: FDA-Public Use
  Company Number: 225668

PATIENT
  Age: 66 Year
  Sex: Female
  Weight: 69.5 kg

DRUGS (6)
  1. MABTHERA(RITUXIMAB) CONC FOR SOLUTION FOR INFUSION [Suspect]
     Indication: NON-HODGKIN'S LYMPHOMA
     Dosage: 375 MG/M2, Q3W, INTRAVENOUS
     Route: 042
     Dates: start: 20050310
  2. FLUDARABINE [Suspect]
     Indication: NON-HODGKIN'S LYMPHOMA
     Dosage: 25 MG/M2, Q3W, INTRAVENOUS
     Route: 042
     Dates: start: 20050209
  3. CYCLOPHOSPHAMIDE [Suspect]
     Indication: NON-HODGKIN'S LYMPHOMA
     Dosage: 1000 MG/M2, Q3W, INTRAVENOUS
     Route: 042
     Dates: start: 20050209
  4. SEPTRIN FORTE (SULFAMETHOXAZOLE, TRIMETHOPRIM) [Concomitant]
  5. CITALOPRAM HYDROBROMIDE [Concomitant]
  6. ORPHOL (ERGOLOID MESYLATES) [Concomitant]

REACTIONS (3)
  - FEBRILE NEUTROPENIA [None]
  - HAEMOGLOBIN DECREASED [None]
  - STAPHYLOCOCCAL INFECTION [None]
